FAERS Safety Report 23654147 (Version 2)
Quarter: 2024Q1

REPORT INFORMATION
  Report Type: Spontaneous
  Country: US (occurrence: US)
  Receive Date: 20240320
  Receipt Date: 20240321
  Transmission Date: 20240410
  Serious: No
  Sender: FDA-Public Use
  Company Number: US-PFIZER INC-202400067815

PATIENT
  Age: 68 Year
  Sex: Female
  Weight: 61.224 kg

DRUGS (1)
  1. NIFEDIPINE [Suspect]
     Active Substance: NIFEDIPINE
     Dosage: 30 MG, 3X/DAY
     Dates: end: 20240318

REACTIONS (5)
  - Drug ineffective [Unknown]
  - Feeling cold [Recovered/Resolved]
  - Eye pruritus [Unknown]
  - Loss of personal independence in daily activities [Unknown]
  - Chest discomfort [Not Recovered/Not Resolved]

NARRATIVE: CASE EVENT DATE: 20240318
